FAERS Safety Report 9442301 (Version 1)
Quarter: 2013Q3

REPORT INFORMATION
  Report Type: Spontaneous
  Country: US (occurrence: US)
  Receive Date: 20130806
  Receipt Date: 20130806
  Transmission Date: 20140515
  Serious: No
  Sender: FDA-Public Use
  Company Number: US-GLAXOSMITHKLINE-A0997690A

PATIENT
  Age: 48 Year
  Sex: Female

DRUGS (4)
  1. ADVAIR [Suspect]
     Indication: LUNG DISORDER
     Route: 055
     Dates: start: 20121008
  2. CYCLOBENZAPRINE [Concomitant]
  3. PRO-AIR [Concomitant]
  4. NAPROXEN [Concomitant]

REACTIONS (4)
  - Oropharyngeal pain [Recovered/Resolved]
  - Pruritus generalised [Recovered/Resolved]
  - Abdominal discomfort [Recovered/Resolved]
  - Headache [Recovered/Resolved]
